FAERS Safety Report 7780619-0 (Version None)
Quarter: 2011Q3

REPORT INFORMATION
  Report Type: 
  Country: None (occurrence: None)
  Receive Date: 20110927
  Receipt Date: 20110524
  Transmission Date: 20111222
  Serious: No
  Sender: FDA-Public Use
  Company Number: US-BRISTOL-MYERS SQUIBB COMPANY-15361157

PATIENT
  Age: 82 Year
  Sex: Female
  Weight: 77 kg

DRUGS (4)
  1. ATENOLOL [Concomitant]
     Dosage: 1DF= 50MG AM AND 25 PM
  2. AVAPRO [Suspect]
     Dosage: STARTED 3 TO 4 MONTHS AGO.
  3. NORVASC [Concomitant]
  4. PRAVACHOL [Concomitant]

REACTIONS (1)
  - DIARRHOEA [None]
